FAERS Safety Report 6507168-1 (Version None)
Quarter: 2009Q4

REPORT INFORMATION
  Report Type: 
  Country: None (occurrence: None)
  Receive Date: 20091221
  Receipt Date: 20091210
  Transmission Date: 20100525
  Serious: Yes (Hospitalization)
  Sender: FDA-Public Use
  Company Number: PHHO2009GB15679

PATIENT

DRUGS (2)
  1. NEORAL [Suspect]
     Dosage: FOETAL DRUG EXPOSURE VIA FATHER
  2. MYCOPHENOLATE MOFETIL [Suspect]
     Dosage: FOETAL DRUG EXPOSURE VIA FATHER

REACTIONS (4)
  - CONGENITAL EPIGLOTTAL ANOMALY [None]
  - DRUG EXPOSURE DURING PREGNANCY [None]
  - DYSPNOEA [None]
  - EPIGLOTTIDECTOMY [None]
